FAERS Safety Report 21054558 (Version 3)
Quarter: 2022Q3

REPORT INFORMATION
  Report Type: Spontaneous
  Country: US (occurrence: None)
  Receive Date: 20220707
  Receipt Date: 20220715
  Transmission Date: 20221026
  Serious: Yes (Hospitalization)
  Sender: FDA-Public Use
  Company Number: 2022A247485

PATIENT
  Age: 15 Year
  Sex: Male

DRUGS (1)
  1. KOSELUGO [Suspect]
     Active Substance: SELUMETINIB
     Indication: Glioma
     Route: 048

REACTIONS (3)
  - Ocular toxicity [Unknown]
  - Blindness [Unknown]
  - Off label use [Unknown]
